FAERS Safety Report 13544732 (Version 1)
Quarter: 2017Q2

REPORT INFORMATION
  Report Type: Spontaneous
  Country: US (occurrence: US)
  Receive Date: 20170515
  Receipt Date: 20170515
  Transmission Date: 20170830
  Serious: Yes (Other)
  Sender: FDA-Public Use
  Company Number: US-GLAXOSMITHKLINE-US2017066814

PATIENT
  Age: 65 Year
  Sex: Female

DRUGS (3)
  1. DULERA [Concomitant]
     Active Substance: FORMOTEROL FUMARATE DIHYDRATE\MOMETASONE FUROATE
  2. NUCALA [Suspect]
     Active Substance: MEPOLIZUMAB
     Indication: ASTHMA
     Dosage: UNK UNK, CYC
     Route: 058
     Dates: start: 201512
  3. ALBUTEROL. [Concomitant]
     Active Substance: ALBUTEROL

REACTIONS (9)
  - Cough [Recovered/Resolved]
  - Staphylococcal infection [Unknown]
  - Rash pruritic [Unknown]
  - Wheezing [Recovered/Resolved]
  - Therapy cessation [Unknown]
  - Rash papular [Unknown]
  - Rash generalised [Unknown]
  - Rash [Not Recovered/Not Resolved]
  - Infectious disease carrier [Unknown]

NARRATIVE: CASE EVENT DATE: 201703
